FAERS Safety Report 21137504 (Version 1)
Quarter: 2022Q3

REPORT INFORMATION
  Report Type: Spontaneous
  Country: US (occurrence: None)
  Receive Date: 20220727
  Receipt Date: 20220727
  Transmission Date: 20221026
  Serious: Yes (Hospitalization)
  Sender: FDA-Public Use
  Company Number: None

PATIENT
  Age: 75 Year
  Sex: Male

DRUGS (2)
  1. FUROSEMIDE [Suspect]
     Active Substance: FUROSEMIDE
     Indication: Hypertension
     Dosage: 40 MG EVERY DAY PO
     Route: 048
     Dates: start: 20220617, end: 20220712
  2. CARVEDILOL [Suspect]
     Active Substance: CARVEDILOL
     Dosage: 6.25 MG BID PO?
     Route: 048
     Dates: start: 20210925

REACTIONS (4)
  - Vision blurred [None]
  - Dizziness [None]
  - Hypotension [None]
  - Muscular weakness [None]

NARRATIVE: CASE EVENT DATE: 20220712
